FAERS Safety Report 4482520-7 (Version None)
Quarter: 2004Q4

REPORT INFORMATION
  Report Type: 
  Country: None (occurrence: None)
  Receive Date: 20041022
  Receipt Date: 20040709
  Transmission Date: 20050328
  Serious: No
  Sender: FDA-Public Use
  Company Number: US-GLAXOSMITHKLINE-A0517691A

PATIENT
  Age: 42 Year
  Sex: Male

DRUGS (3)
  1. LEXIVA [Suspect]
     Indication: HIV INFECTION
     Dosage: 1400MG TWICE PER DAY
     Route: 048
     Dates: start: 20040702
  2. TRIZIVIR [Suspect]
     Indication: HIV INFECTION
  3. PREVACID [Concomitant]

REACTIONS (2)
  - NAUSEA [None]
  - VOMITING [None]
